FAERS Safety Report 5750060-0 (Version None)
Quarter: 2008Q2

REPORT INFORMATION
  Report Type: 
  Country: None (occurrence: None)
  Receive Date: 20080527
  Receipt Date: 20080515
  Transmission Date: 20081010
  Serious: Yes (Hospitalization)
  Sender: FDA-Public Use
  Company Number: US-PFIZER INC-2004104908

PATIENT
  Sex: Female
  Weight: 54.4 kg

DRUGS (2)
  1. NARDIL [Suspect]
     Indication: ILL-DEFINED DISORDER
     Route: 048
  2. MEPERIDINE HCL [Interacting]
     Indication: ILL-DEFINED DISORDER
     Route: 048

REACTIONS (2)
  - DRUG INTERACTION [None]
  - RESPIRATORY ARREST [None]
